FAERS Safety Report 6091215-8 (Version None)
Quarter: 2009Q1

REPORT INFORMATION
  Report Type: 
  Country: None (occurrence: None)
  Receive Date: 20090225
  Receipt Date: 20090223
  Transmission Date: 20090719
  Serious: Yes (Hospitalization)
  Sender: FDA-Public Use
  Company Number: CH-BAYER-200914085GPV

PATIENT
  Age: 77 Year
  Sex: Male

DRUGS (11)
  1. CIPROFLOXACIN HCL [Suspect]
     Indication: URINARY TRACT INFECTION
     Route: 048
     Dates: start: 20081007, end: 20081015
  2. DIFLUCAN [Suspect]
     Indication: CYSTITIS
     Dosage: UNIT DOSE: 200 MG
     Route: 048
     Dates: start: 20080601, end: 20081015
  3. SANDIMMUNE [Suspect]
     Indication: RENAL TRANSPLANT
     Dosage: UNIT DOSE: 75 MG
     Route: 048
     Dates: end: 20081001
  4. CELLCEPT [Suspect]
     Indication: RENAL TRANSPLANT
     Dosage: UNIT DOSE: 750 MG
     Route: 048
     Dates: start: 20000101, end: 20081015
  5. MARCUMAR [Concomitant]
     Indication: DRUG USE FOR UNKNOWN INDICATION
     Dosage: UNIT DOSE: 3 MG
     Route: 048
  6. SORTIS [Concomitant]
     Indication: DRUG USE FOR UNKNOWN INDICATION
     Dosage: UNIT DOSE: 20 MG
     Route: 048
  7. NEXIUM [Concomitant]
     Indication: DRUG USE FOR UNKNOWN INDICATION
     Dosage: UNIT DOSE: 20 MG
     Route: 048
  8. SPIRIVA [Concomitant]
     Indication: CHRONIC OBSTRUCTIVE PULMONARY DISEASE
     Dosage: UNIT DOSE: 22.5 ?G
     Route: 055
  9. AXOTIDE [Concomitant]
     Indication: CHRONIC OBSTRUCTIVE PULMONARY DISEASE
     Dosage: UNIT DOSE: 1 PUFF
     Route: 055
  10. TACROLIMUS [Concomitant]
     Indication: IMMUNOSUPPRESSANT DRUG THERAPY
  11. TAZOBACTAM [Concomitant]
     Indication: DRUG USE FOR UNKNOWN INDICATION

REACTIONS (6)
  - AGRANULOCYTOSIS [None]
  - ASPERGILLOSIS [None]
  - LEUKOCYTOSIS [None]
  - LEUKOPENIA [None]
  - NEUTROPENIA [None]
  - PYREXIA [None]
